FAERS Safety Report 18003732 (Version 2)
Quarter: 2021Q3

REPORT INFORMATION
  Report Type: Spontaneous
  Country: US (occurrence: US)
  Receive Date: 20200710
  Receipt Date: 20210916
  Transmission Date: 20211014
  Serious: No
  Sender: FDA-Public Use
  Company Number: US-BEH-2020119933

PATIENT
  Age: 22 Year
  Sex: Female

DRUGS (15)
  1. METOPROLOL. [Concomitant]
     Active Substance: METOPROLOL
  2. AZITHROMYCIN ANHYDROUS. [Concomitant]
     Active Substance: AZITHROMYCIN ANHYDROUS
  3. NYSTATIN. [Concomitant]
     Active Substance: NYSTATIN
  4. KEPPRA [Concomitant]
     Active Substance: LEVETIRACETAM
  5. AMANTADINE. [Concomitant]
     Active Substance: AMANTADINE HYDROCHLORIDE
  6. HIZENTRA [Suspect]
     Active Substance: HUMAN IMMUNOGLOBULIN G
     Indication: SELECTIVE IGG SUBCLASS DEFICIENCY
     Dosage: 8 GRAM, QOW
     Route: 058
     Dates: start: 202101
  7. MINOCYCLINE [Concomitant]
     Active Substance: MINOCYCLINE HYDROCHLORIDE
  8. XIFAXAN [Concomitant]
     Active Substance: RIFAXIMIN
  9. PREDNISONE. [Concomitant]
     Active Substance: PREDNISONE
  10. VIMPAT [Concomitant]
     Active Substance: LACOSAMIDE
  11. DIAZEPAM. [Concomitant]
     Active Substance: DIAZEPAM
  12. HIZENTRA [Suspect]
     Active Substance: HUMAN IMMUNOGLOBULIN G
     Indication: HYPOGAMMAGLOBULINAEMIA
     Dosage: 8 GRAM, QW
     Route: 058
  13. HIZENTRA [Suspect]
     Active Substance: HUMAN IMMUNOGLOBULIN G
     Indication: TORTICOLLIS
  14. VALTREX [Concomitant]
     Active Substance: VALACYCLOVIR HYDROCHLORIDE
  15. DESMOPRESSIN [Concomitant]
     Active Substance: DESMOPRESSIN

REACTIONS (5)
  - Erythema [Not Recovered/Not Resolved]
  - Off label use [Unknown]
  - Swelling [Not Recovered/Not Resolved]
  - No adverse event [Unknown]
  - Swelling [Unknown]
